FAERS Safety Report 10219362 (Version 1)
Quarter: 2014Q1

REPORT INFORMATION
  Report Type: Spontaneous
  Country: US (occurrence: None)
  Receive Date: 20140306
  Receipt Date: 20140306
  Transmission Date: 20141002
  Serious: Yes (Hospitalization)
  Sender: FDA-Public Use
  Company Number: 163-21880-13100733

PATIENT
  Age: 76 Year
  Sex: Female

DRUGS (4)
  1. REVLIMID [Suspect]
     Indication: PLASMA CELL MYELOMA
     Route: 048
     Dates: start: 20130516
  2. DOCQLAX (PERI-COLACE) [Concomitant]
  3. CLARITIN (LORATADINE) [Concomitant]
  4. LEXAPRO (ESCITALOPRAM OXALATE) [Concomitant]

REACTIONS (1)
  - Lung infection [None]
